FAERS Safety Report 15775266 (Version 2)
Quarter: 2019Q1

REPORT INFORMATION
  Report Type: Spontaneous
  Country: DE (occurrence: DE)
  Receive Date: 20181231
  Receipt Date: 20190104
  Transmission Date: 20190417
  Serious: Yes (Other)
  Sender: FDA-Public Use
  Company Number: DE-ACCORD-099000

PATIENT
  Sex: Male

DRUGS (3)
  1. CASODEX [Interacting]
     Active Substance: BICALUTAMIDE
     Indication: PROSTATE CANCER
     Dosage: 150 MG, QD
     Route: 048
     Dates: start: 20170901
  2. ATENOLOL/ATENOLOL HYDROCHLORIDE [Concomitant]
     Indication: PRODUCT USED FOR UNKNOWN INDICATION
     Route: 048
  3. SERTRALINE [Suspect]
     Active Substance: SERTRALINE HYDROCHLORIDE
     Indication: PRODUCT USED FOR UNKNOWN INDICATION
     Route: 065

REACTIONS (4)
  - Arrhythmia [Not Recovered/Not Resolved]
  - Drug interaction [Unknown]
  - Extrasystoles [Not Recovered/Not Resolved]
  - Bradycardia [Not Recovered/Not Resolved]
